FAERS Safety Report 10656117 (Version 2)
Quarter: 2014Q4

REPORT INFORMATION
  Report Type: Spontaneous
  Country: US (occurrence: US)
  Receive Date: 20141216
  Receipt Date: 20141216
  Transmission Date: 20150529
  Serious: No
  Sender: FDA-Public Use
  Company Number: US-CELGENEUS-163-20785-13064188

PATIENT
  Age: 73 Year
  Sex: Female
  Weight: 61.74 kg

DRUGS (2)
  1. THALOMID [Suspect]
     Active Substance: THALIDOMIDE
     Indication: PLASMA CELL MYELOMA
     Route: 048
     Dates: start: 201004
  2. THALOMID [Suspect]
     Active Substance: THALIDOMIDE
     Route: 048
     Dates: start: 20130104

REACTIONS (3)
  - Neuropathy peripheral [Not Recovered/Not Resolved]
  - Dyspnoea [Unknown]
  - Memory impairment [Unknown]

NARRATIVE: CASE EVENT DATE: 20130622
